FAERS Safety Report 21362853 (Version 1)
Quarter: 2022Q3

REPORT INFORMATION
  Report Type: Spontaneous
  Country: DE (occurrence: DE)
  Receive Date: 20220922
  Receipt Date: 20220922
  Transmission Date: 20221027
  Serious: Yes (Hospitalization)
  Sender: FDA-Public Use
  Company Number: None

PATIENT
  Age: 98 Year
  Sex: Female
  Weight: 60 kg

DRUGS (7)
  1. LORAZEPAM [Suspect]
     Active Substance: LORAZEPAM
     Indication: Product used for unknown indication
     Dosage: 1 MG (BEDARF, SCHMELZTABLETTEN, ORODISPERSIBLE TABLET)
     Route: 048
  2. PIPAMPERONE HYDROCHLORIDE [Suspect]
     Active Substance: PIPAMPERONE HYDROCHLORIDE
     Indication: Product used for unknown indication
     Dosage: UNK (20 MG/5ML, BEDARF, SAFT)
     Route: 048
  3. TORSEMIDE [Suspect]
     Active Substance: TORSEMIDE
     Indication: Product used for unknown indication
     Dosage: 10 MG, TID (1-1-1-0, TABLETTEN)
     Route: 048
  4. DULOXETINE [Concomitant]
     Active Substance: DULOXETINE
     Indication: Product used for unknown indication
     Dosage: 60 MG, QD (1-0-0-0, RETARD-KAPSELN)
     Route: 048
  5. ACETAMINOPHEN [Concomitant]
     Active Substance: ACETAMINOPHEN
     Indication: Product used for unknown indication
     Dosage: 500 MG (BEDARF, TABLETTEN)
     Route: 048
  6. METAMIZOL [Concomitant]
     Active Substance: METAMIZOLE SODIUM
     Indication: Product used for unknown indication
     Dosage: 500 MG, TID (1-1-1-1, TABLETTEN)
     Route: 048
  7. IBUPROFEN [Concomitant]
     Active Substance: IBUPROFEN
     Indication: Product used for unknown indication
     Dosage: 400 MG (BEDARF, TABLETTEN)
     Route: 048

REACTIONS (9)
  - Contusion [Unknown]
  - Pelvic fracture [Unknown]
  - Haematoma [Unknown]
  - Hypokalaemia [Unknown]
  - Fall [Unknown]
  - Medication error [Unknown]
  - Product prescribing error [Unknown]
  - Product prescribing error [Unknown]
  - Product monitoring error [Unknown]
